FAERS Safety Report 5032143-6 (Version None)
Quarter: 2006Q2

REPORT INFORMATION
  Report Type: 
  Country: None (occurrence: None)
  Receive Date: 20060619
  Receipt Date: 20060605
  Transmission Date: 20061013
  Serious: Yes (Other)
  Sender: FDA-Public Use
  Company Number: 007622

PATIENT
  Age: 60 Year
  Sex: Male
  Weight: 83.9 kg

DRUGS (12)
  1. WARFARIN SODIUM [Suspect]
     Indication: ANTICOAGULANT THERAPY
     Dosage: SEE IMAGE
     Route: 048
     Dates: start: 20030101, end: 20060524
  2. WARFARIN SODIUM [Suspect]
     Indication: ANTICOAGULANT THERAPY
     Dosage: SEE IMAGE
     Route: 048
     Dates: start: 20060525, end: 20060601
  3. WARFARIN SODIUM [Suspect]
     Indication: ANTICOAGULANT THERAPY
     Dosage: SEE IMAGE
     Route: 048
     Dates: start: 20060602, end: 20060602
  4. WARFARIN SODIUM [Suspect]
     Indication: ANTICOAGULANT THERAPY
     Dosage: SEE IMAGE
     Route: 048
     Dates: start: 20060603
  5. LORAZEPAM [Concomitant]
  6. CLARINEX [Concomitant]
  7. ATENOLOL [Concomitant]
  8. DEPAKOTE [Concomitant]
  9. AMBIEN [Concomitant]
  10. TYLENOL PM (DIPHENHYDRAMINE) [Concomitant]
  11. MULTIVITAMINS (ERGOCALCIFEROL, PANTHENOL, NICOTINAMIDE, RIBOFLAVIN, TH [Concomitant]
  12. COENZYME Q10 [Concomitant]

REACTIONS (6)
  - BLOOD BLISTER [None]
  - CYSTITIS [None]
  - ORAL MUCOSAL BLISTERING [None]
  - PYELONEPHRITIS [None]
  - TREATMENT NONCOMPLIANCE [None]
  - UPPER RESPIRATORY TRACT INFECTION [None]
